FAERS Safety Report 8074289-4 (Version None)
Quarter: 2012Q1

REPORT INFORMATION
  Report Type: 
  Country: None (occurrence: None)
  Receive Date: 20120126
  Receipt Date: 20120125
  Transmission Date: 20120608
  Serious: Yes (Hospitalization, Other)
  Sender: FDA-Public Use
  Company Number: US-B.I. PHARMACEUTICALS,INC./RIDGEFIELD-2012-BP-00856BP

PATIENT
  Age: 75 Year
  Sex: Male

DRUGS (7)
  1. LOSARTAN POTASSIUM [Concomitant]
  2. PRADAXA [Suspect]
     Indication: ATRIAL FIBRILLATION
     Dosage: 300 MG
     Route: 048
     Dates: end: 20120113
  3. METOPROLOL TARTRATE [Concomitant]
  4. TEGRETOL [Concomitant]
  5. DILANTIN [Concomitant]
  6. TRAZODONE HCL [Suspect]
     Dosage: 50 MG
  7. ASPIRIN [Concomitant]

REACTIONS (1)
  - CONVULSION [None]
